FAERS Safety Report 8707560 (Version 2)
Quarter: 2013Q4

REPORT INFORMATION
  Report Type: Spontaneous
  Country: US (occurrence: US)
  Receive Date: 20120805
  Receipt Date: 20131101
  Transmission Date: 20140711
  Serious: No
  Sender: FDA-Public Use
  Company Number: US-009507513-2012SP036552

PATIENT
  Age: 12 Year
  Sex: Female
  Weight: 47.63 kg

DRUGS (2)
  1. CLARITIN-D-24 [Suspect]
     Indication: SINUS CONGESTION
     Dosage: 10 MG, QD
     Route: 048
  2. CLARITIN-D-24 [Suspect]
     Dosage: 50 MG, UNKNOWN
     Route: 048
     Dates: start: 20120518, end: 20120519

REACTIONS (4)
  - Headache [Not Recovered/Not Resolved]
  - Vomiting [Not Recovered/Not Resolved]
  - Nausea [Not Recovered/Not Resolved]
  - Overdose [Not Recovered/Not Resolved]
